FAERS Safety Report 5165563-X (Version None)
Quarter: 2006Q4

REPORT INFORMATION
  Report Type: 
  Country: None (occurrence: None)
  Receive Date: 20061206
  Receipt Date: 20061204
  Transmission Date: 20070319
  Serious: Yes (Other)
  Sender: FDA-Public Use
  Company Number: US-GLAXOSMITHKLINE-A0630245A

PATIENT
  Age: 64 Year
  Sex: Female

DRUGS (5)
  1. WELLBUTRIN XL [Suspect]
     Indication: BIPOLAR DISORDER
     Dosage: 300MG PER DAY
     Route: 048
     Dates: start: 20060601, end: 20061203
  2. LITHIUM CARBONATE [Suspect]
     Indication: DRUG USE FOR UNKNOWN INDICATION
     Route: 065
  3. BLOOD PRESSURE MEDICATION [Concomitant]
  4. THYROID TAB [Concomitant]
  5. METHADONE HCL [Concomitant]

REACTIONS (7)
  - AGEUSIA [None]
  - ANXIETY [None]
  - DEPRESSION [None]
  - DRY MOUTH [None]
  - DYSGEUSIA [None]
  - PHARMACEUTICAL PRODUCT COMPLAINT [None]
  - SUICIDAL IDEATION [None]
